FAERS Safety Report 20892929 (Version 6)
Quarter: 2022Q3

REPORT INFORMATION
  Report Type: Report from Study
  Country: KR (occurrence: KR)
  Receive Date: 20220531
  Receipt Date: 20220929
  Transmission Date: 20221027
  Serious: Yes (Other)
  Sender: FDA-Public Use
  Company Number: KR-NOVARTISPH-NVSC2022KR123810

PATIENT
  Age: 79 Year
  Sex: Male

DRUGS (5)
  1. BEOVU [Suspect]
     Active Substance: BROLUCIZUMAB-DBLL
     Indication: Neovascular age-related macular degeneration
     Dosage: 6 MG OD(RIGHT EYE)
     Route: 031
     Dates: start: 20220425, end: 20220425
  2. VIGAMOX [Concomitant]
     Active Substance: MOXIFLOXACIN HYDROCHLORIDE
     Indication: Evidence based treatment
     Dosage: 1 DRP (24)
     Route: 065
     Dates: start: 20220425, end: 202204
  3. AFLIBERCEPT [Concomitant]
     Active Substance: AFLIBERCEPT
     Indication: Product used for unknown indication
     Dosage: UNK, OD (RIGHT EYE)
     Route: 065
     Dates: start: 20220523
  4. SULFUR HEXAFLUORIDE [Concomitant]
     Active Substance: SULFUR HEXAFLUORIDE
     Indication: Product use in unapproved indication
     Dosage: UNK
     Route: 065
     Dates: start: 20220425
  5. LEVOFLOXACIN [Concomitant]
     Active Substance: LEVOFLOXACIN
     Indication: Antibiotic therapy
     Dosage: UNK (FORMULATION -OPHTHALMIC SOLUTION), OTHERS (ANTIBIOTICS)
     Route: 047
     Dates: start: 20220603, end: 202206

REACTIONS (2)
  - Vitreous haemorrhage [Recovered/Resolved]
  - Eye inflammation [Recovering/Resolving]

NARRATIVE: CASE EVENT DATE: 20220523
